FAERS Safety Report 7673383-7 (Version None)
Quarter: 2011Q3

REPORT INFORMATION
  Report Type: 
  Country: None (occurrence: None)
  Receive Date: 20110810
  Receipt Date: 20110801
  Transmission Date: 20111222
  Serious: Yes (Hospitalization)
  Sender: FDA-Public Use
  Company Number: US-JNJFOC-20110510902

PATIENT
  Sex: Female
  Weight: 82.3 kg

DRUGS (7)
  1. PANTOPRAZOLE [Concomitant]
  2. REMICADE [Suspect]
     Route: 042
     Dates: start: 20071215
  3. REMICADE [Suspect]
     Indication: CROHN'S DISEASE
     Dosage: TOTAL 30 DOSES
     Route: 042
     Dates: start: 20110225
  4. MESALAMINE [Concomitant]
  5. CIPROFLOXACIN HCL [Concomitant]
  6. MERCAPTOPURINE [Concomitant]
  7. PROTONIX [Concomitant]

REACTIONS (1)
  - CROHN'S DISEASE [None]
